FAERS Safety Report 5835685-6 (Version None)
Quarter: 2008Q3

REPORT INFORMATION
  Report Type: 
  Country: None (occurrence: None)
  Receive Date: 20080806
  Receipt Date: 20080801
  Transmission Date: 20090109
  Serious: Yes (Hospitalization)
  Sender: FDA-Public Use
  Company Number: AR-ABBOTT-05P-007-0307432-00

PATIENT
  Age: 50 Year
  Sex: Female
  Weight: 50 kg

DRUGS (4)
  1. VALCOTE [Suspect]
     Indication: MANIA
     Dates: start: 20050720, end: 20050727
  2. CLONAZEPAM [Concomitant]
     Indication: BIPOLAR DISORDER
     Route: 048
     Dates: end: 20050727
  3. FLUOXETINE [Concomitant]
     Indication: BIPOLAR DISORDER
     Dosage: 6/25 MG
     Route: 048
     Dates: start: 20050720, end: 20050727
  4. FLUMAZENIL [Concomitant]
     Indication: ENCEPHALOPATHY
     Route: 042
     Dates: start: 20050727, end: 20050727

REACTIONS (5)
  - APHASIA [None]
  - HYPERAMMONAEMIA [None]
  - LOSS OF CONSCIOUSNESS [None]
  - SENSORY DISTURBANCE [None]
  - VOMITING [None]
